FAERS Safety Report 8495270-7 (Version None)
Quarter: 2012Q3

REPORT INFORMATION
  Report Type: 
  Country: None (occurrence: None)
  Receive Date: 20120709
  Receipt Date: 20120625
  Transmission Date: 20120928
  Serious: Yes (Congenital Anomaly, Other)
  Sender: FDA-Public Use
  Company Number: DE-MYLANLABS-2012S1012754

PATIENT
  Age: 0 Year
  Sex: Male
  Weight: 2.24 kg

DRUGS (8)
  1. IMMUNE GLOBULIN INTRAVENOUS (HUMAN) [Suspect]
     Route: 064
     Dates: start: 20100312, end: 20100314
  2. RITUXAN [Suspect]
     Dosage: 800 [MG/D ]/ ON JAN., THE 24TH: 800MG, THE OTHER 3 TIMES 700MG
     Route: 064
     Dates: start: 20100124, end: 20100215
  3. PROTAPHANE [Concomitant]
     Route: 064
     Dates: start: 20100217, end: 20100316
  4. OMEPRAZOLE [Suspect]
     Dosage: 20 [MG/D ]
     Route: 064
  5. PREDNISONE TAB [Concomitant]
     Route: 064
     Dates: start: 20091215, end: 20100316
  6. DEXAMETHASONE [Concomitant]
     Route: 064
     Dates: start: 20100312, end: 20100314
  7. FOLIC ACID [Concomitant]
     Route: 064
  8. PREDNISONE [Concomitant]
     Route: 064
     Dates: start: 20091112, end: 20091116

REACTIONS (6)
  - MATERNAL EXPOSURE DURING PREGNANCY [None]
  - B-LYMPHOCYTE COUNT DECREASED [None]
  - VENTRICULAR SEPTAL DEFECT [None]
  - IMMUNOGLOBULINS DECREASED [None]
  - NEONATAL RESPIRATORY DISTRESS SYNDROME [None]
  - PREMATURE BABY [None]
